FAERS Safety Report 8528197 (Version 2)
Quarter: 2013Q1

REPORT INFORMATION
  Report Type: Spontaneous
  Country: CA (occurrence: CA)
  Receive Date: 20120424
  Receipt Date: 20130313
  Transmission Date: 20140127
  Serious: Yes (Life-Threatening, Hospitalization, Disabling)
  Sender: FDA-Public Use
  Company Number: CA-ELI_LILLY_AND_COMPANY-CA201204003494

PATIENT
  Age: 50 Year
  Sex: Male
  Weight: 81.6 kg

DRUGS (9)
  1. CYMBALTA [Suspect]
     Indication: MAJOR DEPRESSION
     Dosage: 39 MG, UNK
     Dates: start: 20100702
  2. CYMBALTA [Suspect]
     Dosage: 60 MG, UNK
     Dates: start: 20100729, end: 20110611
  3. CIPRALEX [Concomitant]
  4. CLONAZEPAM [Concomitant]
  5. KEMADRIN [Concomitant]
  6. PANTOLOC                           /01263204/ [Concomitant]
  7. PMS-PROCYCLIDINE [Concomitant]
  8. RIVOTRIL [Concomitant]
  9. PANTOPRAZOLE TEVA [Concomitant]

REACTIONS (8)
  - Suicidal ideation [Unknown]
  - Abnormal behaviour [Unknown]
  - Bipolar disorder [Unknown]
  - Headache [Unknown]
  - Paranoia [Unknown]
  - Ear pain [Unknown]
  - Eye pain [Unknown]
  - Delusional disorder, unspecified type [Unknown]
